FAERS Safety Report 20169855 (Version 2)
Quarter: 2022Q1

REPORT INFORMATION
  Report Type: Report from Study
  Country: FR (occurrence: FR)
  Receive Date: 20211210
  Receipt Date: 20220206
  Transmission Date: 20220423
  Serious: Yes (Hospitalization, Other)
  Sender: FDA-Public Use
  Company Number: FR-BRISTOL-MYERS SQUIBB COMPANY-BMS-2021-128723

PATIENT
  Age: 63 Year
  Sex: Male

DRUGS (2)
  1. NIVOLUMAB [Suspect]
     Active Substance: NIVOLUMAB
     Indication: Non-small cell lung cancer
     Dosage: 170 MILLIGRAM, Q2WK
     Route: 042
     Dates: start: 20210527
  2. NIVOLUMAB [Suspect]
     Active Substance: NIVOLUMAB
     Dosage: 150 MILLIGRAM, Q2WK
     Route: 042
     Dates: start: 20210930, end: 20211028

REACTIONS (5)
  - Pneumonia [Recovering/Resolving]
  - Peripheral ischaemia [Unknown]
  - Iliac artery occlusion [Unknown]
  - Decreased appetite [Recovering/Resolving]
  - Prescribed underdose [Recovered/Resolved]

NARRATIVE: CASE EVENT DATE: 20210527
